FAERS Safety Report 17516206 (Version 1)
Quarter: 2020Q1

REPORT INFORMATION
  Report Type: Spontaneous
  Country: US (occurrence: US)
  Receive Date: 20200309
  Receipt Date: 20200309
  Transmission Date: 20200409
  Serious: Yes (Other)
  Sender: FDA-Public Use
  Company Number: US-PFIZER INC-2020101733

PATIENT
  Age: 41 Year
  Sex: Female
  Weight: 57.79 kg

DRUGS (2)
  1. LEVOTHYROXINE. [Concomitant]
     Active Substance: LEVOTHYROXINE
     Indication: HYPOTHYROIDISM
     Dosage: 100 UG, 1X/DAY (100MCG TABLET ONCE A DAY IN THE MORNING.)
  2. PREMARIN [Suspect]
     Active Substance: ESTROGENS, CONJUGATED
     Indication: HYSTERECTOMY
     Dosage: 0.9 MG, 1X/DAY (0.9MG TABLET BY MOUTH ONCE A DAY)
     Route: 048
     Dates: start: 1982

REACTIONS (5)
  - Intentional product use issue [Unknown]
  - Therapeutic response unexpected [Unknown]
  - Hair colour changes [Unknown]
  - Body height decreased [Unknown]
  - Hot flush [Unknown]

NARRATIVE: CASE EVENT DATE: 1982
